FAERS Safety Report 11256155 (Version 1)
Quarter: 2015Q3

REPORT INFORMATION
  Report Type: Spontaneous
  Country: US (occurrence: US)
  Receive Date: 20150709
  Receipt Date: 20150709
  Transmission Date: 20151125
  Serious: No
  Sender: FDA-Public Use
  Company Number: US-VIIV HEALTHCARE LIMITED-US2014GSK047529

PATIENT
  Sex: Female

DRUGS (1)
  1. EPIVIR HBV [Suspect]
     Active Substance: LAMIVUDINE
     Indication: HEPATITIS B
     Dosage: 100 MG, U
     Dates: start: 201409

REACTIONS (1)
  - Exposure during pregnancy [Unknown]
